FAERS Safety Report 7913635-6 (Version None)
Quarter: 2011Q4

REPORT INFORMATION
  Report Type: 
  Country: None (occurrence: None)
  Receive Date: 20111115
  Receipt Date: 20111108
  Transmission Date: 20120403
  Serious: No
  Sender: FDA-Public Use
  Company Number: US-PFIZER INC-2011244162

PATIENT
  Sex: Female
  Weight: 115.19 kg

DRUGS (2)
  1. NEURONTIN [Concomitant]
     Dosage: UNK
  2. TOVIAZ [Suspect]
     Indication: HYPERTONIC BLADDER
     Dosage: 4 MG, 1X/DAY
     Route: 048
     Dates: start: 20110701

REACTIONS (5)
  - POLLAKIURIA [None]
  - DRY MOUTH [None]
  - CONSTIPATION [None]
  - DIARRHOEA [None]
  - DRUG INEFFECTIVE [None]
